FAERS Safety Report 5740266-9 (Version None)
Quarter: 2008Q2

REPORT INFORMATION
  Report Type: 
  Country: None (occurrence: None)
  Receive Date: 20080516
  Receipt Date: 20080508
  Transmission Date: 20081010
  Serious: Yes (Hospitalization, Disabling, Other)
  Sender: FDA-Public Use
  Company Number: CA-ASTRAZENECA-2008UW08894

PATIENT
  Age: 59 Year
  Sex: Female

DRUGS (1)
  1. NAROPIN [Suspect]
     Indication: SURGERY
     Route: 008

REACTIONS (4)
  - CAUDA EQUINA SYNDROME [None]
  - DIFFUSE AXONAL INJURY [None]
  - PAIN IN EXTREMITY [None]
  - PARALYSIS [None]
